FAERS Safety Report 5262625-3 (Version None)
Quarter: 2007Q1

REPORT INFORMATION
  Report Type: 
  Country: None (occurrence: None)
  Receive Date: 20070312
  Receipt Date: 20070228
  Transmission Date: 20070707
  Serious: Yes (Hospitalization)
  Sender: FDA-Public Use
  Company Number: 2006UW05783

PATIENT
  Age: 15865 Day
  Sex: Female
  Weight: 112.3 kg

DRUGS (27)
  1. SEROQUEL [Suspect]
     Indication: DEPRESSION
     Route: 048
     Dates: start: 20001109, end: 20010420
  2. SEROQUEL [Suspect]
     Indication: POST-TRAUMATIC STRESS DISORDER
     Route: 048
     Dates: start: 20001109, end: 20010420
  3. SEROQUEL [Suspect]
     Indication: SCHIZOPHRENIA
     Route: 048
     Dates: start: 20001109, end: 20010420
  4. SEROQUEL [Suspect]
     Route: 048
     Dates: start: 20010401, end: 20010801
  5. SEROQUEL [Suspect]
     Route: 048
     Dates: start: 20010401, end: 20010801
  6. SEROQUEL [Suspect]
     Route: 048
     Dates: start: 20010401, end: 20010801
  7. SEROQUEL [Suspect]
     Route: 048
     Dates: start: 20010801, end: 20031201
  8. SEROQUEL [Suspect]
     Route: 048
     Dates: start: 20010801, end: 20031201
  9. SEROQUEL [Suspect]
     Route: 048
     Dates: start: 20010801, end: 20031201
  10. SEROQUEL [Suspect]
     Route: 048
     Dates: start: 20040101, end: 20050601
  11. SEROQUEL [Suspect]
     Route: 048
     Dates: start: 20040101, end: 20050601
  12. SEROQUEL [Suspect]
     Route: 048
     Dates: start: 20040101, end: 20050601
  13. SEROQUEL [Suspect]
     Route: 048
     Dates: start: 20050801, end: 20060401
  14. SEROQUEL [Suspect]
     Route: 048
     Dates: start: 20050801, end: 20060401
  15. SEROQUEL [Suspect]
     Route: 048
     Dates: start: 20050801, end: 20060401
  16. VASOTEC [Concomitant]
     Indication: HYPERTENSION
  17. LEXAPRO [Concomitant]
  18. PROTONIX [Concomitant]
  19. GEODON [Concomitant]
  20. TRAZODONE HCL [Concomitant]
  21. HUMULIN 70/30 [Concomitant]
     Dosage: 70/30
  22. HUMULIN 70/30 [Concomitant]
     Dosage: EVENING
  23. BACTRIM DS [Concomitant]
     Dosage: ONE BID X 5 DAYS
     Dates: start: 20050311
  24. GLYBURIDE [Concomitant]
  25. VISTARIL [Concomitant]
     Dosage: PRN
  26. ABILIFY [Concomitant]
     Dates: start: 20050810, end: 20050811
  27. RISPERDAL [Concomitant]
     Dates: start: 20060401

REACTIONS (17)
  - APATHY [None]
  - ASTHENIA [None]
  - BACK PAIN [None]
  - CALCULUS URETERIC [None]
  - DECREASED APPETITE [None]
  - DEPRESSION [None]
  - DIABETES MELLITUS INSULIN-DEPENDENT [None]
  - HALLUCINATION, AUDITORY [None]
  - HEART RATE INCREASED [None]
  - INSOMNIA [None]
  - INTENTIONAL OVERDOSE [None]
  - MIGRAINE [None]
  - PANIC ATTACK [None]
  - STRESS [None]
  - SUICIDAL IDEATION [None]
  - SUICIDE ATTEMPT [None]
  - TEARFULNESS [None]
